FAERS Safety Report 21723421 (Version 1)
Quarter: 2022Q4

REPORT INFORMATION
  Report Type: Spontaneous
  Country: US (occurrence: None)
  Receive Date: 20221213
  Receipt Date: 20221213
  Transmission Date: 20230113
  Serious: Yes (Other)
  Sender: FDA-Public Use
  Company Number: None

PATIENT
  Age: 56 Year
  Sex: Male
  Weight: 92.25 kg

DRUGS (2)
  1. PAXLOVID [Suspect]
     Active Substance: NIRMATRELVIR\RITONAVIR
     Indication: COVID-19
     Dates: start: 20221130, end: 20221202
  2. ADVIL [Concomitant]
     Active Substance: IBUPROFEN

REACTIONS (5)
  - Axillary pain [None]
  - Pain in extremity [None]
  - Arthralgia [None]
  - Rash [None]
  - Loss of libido [None]

NARRATIVE: CASE EVENT DATE: 20221208
